FAERS Safety Report 7612809-1 (Version None)
Quarter: 2011Q3

REPORT INFORMATION
  Report Type: 
  Country: None (occurrence: None)
  Receive Date: 20110708
  Receipt Date: 20110623
  Transmission Date: 20111222
  Serious: Yes (Hospitalization)
  Sender: FDA-Public Use
  Company Number: 2011AP000023

PATIENT
  Age: 16 Year
  Sex: Female

DRUGS (3)
  1. TOPIRAMATE [Suspect]
     Indication: EPILEPSY
     Dosage: 150 MG; PO; BID
     Route: 048
     Dates: start: 20101108, end: 20101210
  2. CLOBAZAM (CLOBAZAM) [Concomitant]
  3. LAMOTRIGINE [Concomitant]

REACTIONS (4)
  - MEMORY IMPAIRMENT [None]
  - SENSORY DISTURBANCE [None]
  - HALLUCINATION, VISUAL [None]
  - DEPERSONALISATION [None]
